FAERS Safety Report 5306483-7 (Version None)
Quarter: 2007Q2

REPORT INFORMATION
  Report Type: 
  Country: None (occurrence: None)
  Receive Date: 20070416
  Receipt Date: 20070406
  Transmission Date: 20071010
  Serious: Yes (Death)
  Sender: FDA-Public Use
  Company Number: 2007SP006404

PATIENT
  Sex: Male

DRUGS (1)
  1. PEG-INTRON [Suspect]
     Indication: DRUG USE FOR UNKNOWN INDICATION
     Dosage: 150 MCG
     Dates: start: 20061113, end: 20070402

REACTIONS (4)
  - ALANINE AMINOTRANSFERASE INCREASED [None]
  - FEELING COLD [None]
  - PLATELET COUNT DECREASED [None]
  - VIRAL LOAD INCREASED [None]
